FAERS Safety Report 5867652-0 (Version None)
Quarter: 2008Q3

REPORT INFORMATION
  Report Type: 
  Country: None (occurrence: None)
  Receive Date: 20080902
  Receipt Date: 20080820
  Transmission Date: 20090109
  Serious: Yes (Other)
  Sender: FDA-Public Use
  Company Number: BR-ROCHE-576552

PATIENT
  Sex: Male
  Weight: 82 kg

DRUGS (5)
  1. RIVOTRIL [Suspect]
     Indication: ANXIETY
     Route: 048
     Dates: start: 20071001, end: 20080501
  2. RIVOTRIL [Suspect]
     Dosage: STRENGTH: 2 MG/TAB
     Route: 048
     Dates: start: 20080601
  3. RISPERIDONE [Concomitant]
     Indication: OBSESSIVE-COMPULSIVE DISORDER
  4. SEMAP [Concomitant]
     Indication: SCHIZOPHRENIA
  5. FENERGAN [Concomitant]
     Dosage: DOSAGE REGIMEN : DAILY.
     Dates: start: 20080815

REACTIONS (7)
  - ANXIETY [None]
  - HALLUCINATION [None]
  - ILL-DEFINED DISORDER [None]
  - INSOMNIA [None]
  - MANIA [None]
  - NERVOUSNESS [None]
  - SOMNOLENCE [None]
